FAERS Safety Report 26091184 (Version 1)
Quarter: 2025Q4

REPORT INFORMATION
  Report Type: Spontaneous
  Country: EU (occurrence: EU)
  Receive Date: 20251126
  Receipt Date: 20251126
  Transmission Date: 20260118
  Serious: Yes (Other)
  Sender: SAMSUNG BIOEPIS
  Company Number: EU-SAMSUNG BIOEPIS-SB-2025-38807

PATIENT
  Sex: Female

DRUGS (1)
  1. IMRALDI [Suspect]
     Active Substance: ADALIMUMAB
     Indication: Product used for unknown indication
     Dosage: 40 MG/0.4 ML;
     Route: 058
     Dates: start: 20251119

REACTIONS (6)
  - Shock [Unknown]
  - Peripheral swelling [Unknown]
  - Injection site haemorrhage [Unknown]
  - Hypoaesthesia [Unknown]
  - Occupational exposure to product [Unknown]
  - Wrong technique in device usage process [Unknown]

NARRATIVE: CASE EVENT DATE: 20251119
